FAERS Safety Report 8694016 (Version 6)
Quarter: 2013Q2

REPORT INFORMATION
  Report Type: Report from Study
  Country: CA (occurrence: CA)
  Receive Date: 20120731
  Receipt Date: 20130523
  Transmission Date: 20140414
  Serious: Yes (Death, Hospitalization, Other)
  Sender: FDA-Public Use
  Company Number: PHHY2010CA50815

PATIENT
  Age: 59 Year
  Sex: Male

DRUGS (3)
  1. SANDOSTATIN LAR [Suspect]
     Indication: CARCINOID TUMOUR
     Dosage: 20 MG, QMO
     Route: 030
     Dates: start: 20100727
  2. SANDOSTATIN LAR [Suspect]
     Dosage: 30 MG, ONCE IN EVERY 4 WEEKS
     Route: 030
  3. SANDOSTATIN LAR [Suspect]
     Dosage: 30 MG, ONCE A MONTH
     Route: 030
     Dates: end: 20130402

REACTIONS (10)
  - Death [Fatal]
  - Bone marrow disorder [Recovering/Resolving]
  - Pyrexia [Unknown]
  - Hypotension [Unknown]
  - Thrombocytopenia [Recovering/Resolving]
  - Blood pressure increased [Unknown]
  - Anaemia [Unknown]
  - Heart rate irregular [Unknown]
  - Injection site haemorrhage [Unknown]
  - Injection site haematoma [Unknown]
